FAERS Safety Report 12734218 (Version 1)
Quarter: 2016Q3

REPORT INFORMATION
  Report Type: Spontaneous
  Country: US (occurrence: US)
  Receive Date: 20160912
  Receipt Date: 20160912
  Transmission Date: 20161109
  Serious: No
  Sender: FDA-Public Use
  Company Number: US-BAYER-2016-176536

PATIENT
  Age: 68 Year
  Sex: Male
  Weight: 158.73 kg

DRUGS (4)
  1. MICROGENICS PROBIOTIC 8 [Concomitant]
     Active Substance: LACTOBACILLUS ACIDOPHILUS
  2. PHILLIPS COLON HEALTH PRIOBIOTICS WITH METABOLISM SUPPORT [Concomitant]
     Dosage: UNK
  3. Q10 [Concomitant]
     Dosage: UNK
  4. MIRALAX [Suspect]
     Active Substance: POLYETHYLENE GLYCOL 3350
     Indication: GASTROINTESTINAL DISORDER
     Dosage: 1 DF, QOD
     Route: 048

REACTIONS (1)
  - Product use issue [None]
